FAERS Safety Report 4448732-3 (Version None)
Quarter: 2004Q3

REPORT INFORMATION
  Report Type: 
  Country: None (occurrence: None)
  Receive Date: 20040909
  Receipt Date: 20040824
  Transmission Date: 20050211
  Serious: Yes (Hospitalization)
  Sender: FDA-Public Use
  Company Number: 2004-BP-07358AU

PATIENT
  Age: 86 Year
  Sex: Female

DRUGS (9)
  1. MICARDIS [Suspect]
     Indication: ESSENTIAL HYPERTENSION
     Dosage: PO
     Route: 048
     Dates: start: 20031216, end: 20031218
  2. FUROSEMIDE [Suspect]
     Indication: CARDIAC FAILURE CONGESTIVE
     Dosage: 20 MG (20 MGONCE DAILY) ,PO; 18/DE
     Route: 048
  3. VIOXX [Suspect]
     Indication: OSTEOARTHRITIS
     Dosage: 25 MG (25 MG, 25 MG ONCE DAILY), PO
     Route: 048
  4. THYROXINE [Concomitant]
  5. CEFACLOR [Concomitant]
  6. PANTOPRAZOLE (PANTOPRAZOLE) [Concomitant]
  7. MIANSERIN (MIANSERIN) [Concomitant]
  8. MS CONTIN [Concomitant]
  9. MORPHINE SULFATE [Concomitant]

REACTIONS (1)
  - HYPONATRAEMIA [None]
